FAERS Safety Report 5580514-1 (Version None)
Quarter: 2008Q1

REPORT INFORMATION
  Report Type: 
  Country: None (occurrence: None)
  Receive Date: 20080103
  Receipt Date: 20071220
  Transmission Date: 20080703
  Serious: Yes (Other)
  Sender: FDA-Public Use
  Company Number: CA-ELI_LILLY_AND_COMPANY-CA200710001430

PATIENT
  Sex: Male

DRUGS (11)
  1. HUMULIN 70/30 [Suspect]
     Indication: DIABETES MELLITUS
     Dosage: 15 U, EACH MORNING
     Route: 058
     Dates: start: 20070928, end: 20070930
  2. HUMULIN 70/30 [Suspect]
     Dosage: 30 U, EACH EVENING
     Route: 058
     Dates: start: 20070928, end: 20070930
  3. HUMULIN 70/30 [Suspect]
     Dosage: 54 U, EACH MORNING
     Route: 058
     Dates: start: 20071001, end: 20071001
  4. HUMULIN 70/30 [Suspect]
     Dosage: 36 U, EACH EVENING
     Route: 058
     Dates: start: 20071001, end: 20071001
  5. HUMULIN 70/30 [Suspect]
     Dosage: 60 U, EACH MORNING
     Route: 058
     Dates: start: 20071002, end: 20071002
  6. HUMULIN 70/30 [Suspect]
     Dosage: 40 U, EACH EVENING
     Route: 058
     Dates: start: 20071002, end: 20071002
  7. HUMULIN 70/30 [Suspect]
     Dosage: 66 U, EACH MORNING
     Route: 058
     Dates: start: 20071003
  8. HUMULIN 70/30 [Suspect]
     Dosage: 46 U, EACH EVENING
     Route: 058
     Dates: start: 20071003
  9. HUMAN INSULIN (RDNA ORIGIN) [Suspect]
     Dates: start: 19920101
  10. NOVOLIN R [Concomitant]
     Indication: DIABETES MELLITUS
     Dosage: 90 U, DAILY (1/D)
  11. NOVOLIN N [Concomitant]
     Indication: DIABETES MELLITUS
     Dosage: 50 U, DAILY (1/D)

REACTIONS (7)
  - BLOOD GLUCOSE INCREASED [None]
  - CARDIAC DISORDER [None]
  - DRUG INEFFECTIVE [None]
  - FATIGUE [None]
  - MYOCARDIAL INFARCTION [None]
  - PAIN [None]
  - WEIGHT INCREASED [None]
